FAERS Safety Report 12065629 (Version 2)
Quarter: 2016Q1

REPORT INFORMATION
  Report Type: Report from Study
  Country: US (occurrence: US)
  Receive Date: 20160210
  Receipt Date: 20160304
  Transmission Date: 20160526
  Serious: No
  Sender: FDA-Public Use
  Company Number: US-AMGEN-USASL2016013545

PATIENT
  Age: 66 Year
  Sex: Female

DRUGS (1)
  1. ENBREL [Suspect]
     Active Substance: ETANERCEPT
     Indication: RHEUMATOID ARTHRITIS
     Dosage: 50 MG, 1 WEEKLY
     Route: 065
     Dates: start: 201408

REACTIONS (4)
  - Erythema [Unknown]
  - Skin discolouration [Unknown]
  - Gait disturbance [Unknown]
  - Impaired work ability [Unknown]
